FAERS Safety Report 9687187 (Version 1)
Quarter: 2013Q4

REPORT INFORMATION
  Report Type: Spontaneous
  Country: NZ (occurrence: NZ)
  Receive Date: 20131113
  Receipt Date: 20131113
  Transmission Date: 20140711
  Serious: Yes (Other)
  Sender: FDA-Public Use
  Company Number: NZ-MYLANLABS-2013S1024533

PATIENT
  Age: 74 Year
  Sex: Female

DRUGS (7)
  1. FENTANYL [Suspect]
     Indication: ROTATOR CUFF SYNDROME
     Route: 062
  2. FENTANYL [Suspect]
     Indication: ROTATOR CUFF SYNDROME
     Route: 062
  3. PANADOL [Concomitant]
     Indication: PAIN
     Route: 048
  4. CODEINE [Concomitant]
     Indication: PAIN
     Route: 048
  5. METFORMIN [Concomitant]
     Indication: DIABETES MELLITUS
     Route: 048
  6. INSULIN [Concomitant]
     Indication: DIABETES MELLITUS
     Route: 058
  7. ANTHISAN [Concomitant]
     Indication: PRURITUS

REACTIONS (4)
  - Feeling abnormal [Recovered/Resolved]
  - Application site pain [Not Recovered/Not Resolved]
  - Application site pruritus [Not Recovered/Not Resolved]
  - Application site erythema [Not Recovered/Not Resolved]
